APPROVED DRUG PRODUCT: WYGESIC
Active Ingredient: ACETAMINOPHEN; PROPOXYPHENE HYDROCHLORIDE
Strength: 650MG;65MG
Dosage Form/Route: TABLET;ORAL
Application: A084999 | Product #001
Applicant: CARACO PHARMACEUTICAL LABORATORIES LTD
Approved: Approved Prior to Jan 1, 1982 | RLD: No | RS: No | Type: DISCN